FAERS Safety Report 5792148-4 (Version None)
Quarter: 2008Q2

REPORT INFORMATION
  Report Type: 
  Country: None (occurrence: None)
  Receive Date: 20080625
  Receipt Date: 20080306
  Transmission Date: 20081010
  Serious: No
  Sender: FDA-Public Use
  Company Number: US-WYE-H02996808

PATIENT
  Age: 52 Year
  Sex: Female
  Weight: 69.01 kg

DRUGS (4)
  1. TORISEL [Suspect]
     Indication: RENAL CANCER
     Dosage: 25 MG 1X PER 1 WK, INTRAVENOUS
     Route: 042
     Dates: start: 20071101
  2. MONOPRIL [Concomitant]
  3. ZOCOR [Concomitant]
  4. TRICOR [Concomitant]

REACTIONS (6)
  - AGEUSIA [None]
  - APHTHOUS STOMATITIS [None]
  - BLOOD CHOLESTEROL INCREASED [None]
  - CONDITION AGGRAVATED [None]
  - SKIN DISCOLOURATION [None]
  - WEIGHT DECREASED [None]
